FAERS Safety Report 20486558 (Version 1)
Quarter: 2022Q1

REPORT INFORMATION
  Report Type: Spontaneous
  Country: CA (occurrence: CA)
  Receive Date: 20220217
  Receipt Date: 20220217
  Transmission Date: 20220423
  Serious: Yes (Other)
  Sender: FDA-Public Use
  Company Number: CA-NOVARTISPH-NVSC2022CA036105

PATIENT
  Age: 82 Year
  Sex: Female

DRUGS (1)
  1. TEGRETOL XR [Suspect]
     Active Substance: CARBAMAZEPINE
     Indication: Trigeminal neuralgia
     Dosage: 2 DOSAGE FORM, QD
     Route: 048

REACTIONS (3)
  - Asthenia [Recovered/Resolved]
  - Hypernatraemia [Recovered/Resolved]
  - Malaise [Recovered/Resolved]
